FAERS Safety Report 18657063 (Version 1)
Quarter: 2020Q4

REPORT INFORMATION
  Report Type: Report from Study
  Country: US (occurrence: US)
  Receive Date: 20201224
  Receipt Date: 20201224
  Transmission Date: 20210114
  Serious: Yes (Other)
  Sender: FDA-Public Use
  Company Number: US-ROCHE-2738330

PATIENT
  Age: 59 Year
  Sex: Female
  Weight: 57.6 kg

DRUGS (9)
  1. VENETOCLAX. [Suspect]
     Active Substance: VENETOCLAX
     Dosage: ON DAYS 22-28, CYCLE 3
     Route: 048
     Dates: start: 20200603, end: 20200609
  2. VENETOCLAX. [Suspect]
     Active Substance: VENETOCLAX
     Dosage: 50 MG PO QD DAYS 8-14, CYCLE 3
     Route: 048
     Dates: start: 20200520, end: 20200526
  3. OBINUTUZUMAB. [Suspect]
     Active Substance: OBINUTUZUMAB
     Dosage: 1000 MG IV ON DAY 8 OF CYCLE 1, 1000 MG IV ON DAY 15 OF CYCLE 1, 1000 MG IV ON DAY 1 OF CYCLE 2-6
     Route: 042
  4. VENETOCLAX. [Suspect]
     Active Substance: VENETOCLAX
     Dosage: ON DAYS 1-28, CYCLES 4-14
     Route: 048
     Dates: start: 20200610
  5. OBINUTUZUMAB. [Suspect]
     Active Substance: OBINUTUZUMAB
     Indication: CHRONIC LYMPHOCYTIC LEUKAEMIA
     Dosage: OVER 4 HOURS ON DAYS 1 OF CYCLE 1?DATE OF LAST DOSE OF OBINUTUZUMAB ADMINISTERED: 09/JUN/2020
     Route: 042
     Dates: start: 20200218, end: 20200218
  6. OBINUTUZUMAB. [Suspect]
     Active Substance: OBINUTUZUMAB
     Dosage: 900 MG IV ON DAY 2, CYCLE 1
     Route: 042
     Dates: start: 20200219, end: 20200219
  7. VENETOCLAX. [Suspect]
     Active Substance: VENETOCLAX
     Indication: CHRONIC LYMPHOCYTIC LEUKAEMIA
     Dosage: ON DAYS 1-7 OF CYCLES 3?DATE OF LAST DOSE OF VENETOCLAX ADMINISTERED: 06/JUL/2020
     Route: 048
     Dates: start: 20200513, end: 20200519
  8. VENETOCLAX. [Suspect]
     Active Substance: VENETOCLAX
     Dosage: 100 MG PO QD DAYS 15-21, CYCLE 3
     Route: 048
     Dates: start: 20200527, end: 20200602
  9. IBRUTINIB [Suspect]
     Active Substance: IBRUTINIB
     Indication: CHRONIC LYMPHOCYTIC LEUKAEMIA
     Dosage: ON DAYS 1-28, CYCLES 1-19?DATE OF LAST DOSE OF IBRUTINIB ADMINISTERED: 06/JUL/2020
     Route: 048
     Dates: start: 20200218

REACTIONS (2)
  - Neutrophil count decreased [Recovered/Resolved]
  - White blood cell count decreased [Recovered/Resolved]

NARRATIVE: CASE EVENT DATE: 20200707
